FAERS Safety Report 13289512 (Version 2)
Quarter: 2017Q2

REPORT INFORMATION
  Report Type: Spontaneous
  Country: US (occurrence: US)
  Receive Date: 20170302
  Receipt Date: 20170412
  Transmission Date: 20170830
  Serious: No
  Sender: FDA-Public Use
  Company Number: US-JNJFOC-20170123356

PATIENT
  Age: 77 Year
  Sex: Female
  Weight: 72.58 kg

DRUGS (2)
  1. IMODIUM MULTI-SYMPTOM RELIEF [Suspect]
     Active Substance: DIMETHICONE\LOPERAMIDE HYDROCHLORIDE
     Indication: ABDOMINAL DISTENSION
     Route: 048
     Dates: start: 20170120, end: 20170121
  2. IMODIUM MULTI-SYMPTOM RELIEF [Suspect]
     Active Substance: DIMETHICONE\LOPERAMIDE HYDROCHLORIDE
     Route: 048

REACTIONS (5)
  - Product quality issue [Unknown]
  - Incorrect dose administered [Unknown]
  - Foreign body [Recovered/Resolved]
  - Product size issue [Unknown]
  - Product use complaint [Unknown]

NARRATIVE: CASE EVENT DATE: 20170120
